FAERS Safety Report 6198884-2 (Version None)
Quarter: 2009Q2

REPORT INFORMATION
  Report Type: 
  Country: None (occurrence: None)
  Receive Date: 20090519
  Receipt Date: 20090519
  Transmission Date: 20091009
  Serious: Yes (Other)
  Sender: FDA-Public Use
  Company Number: None

PATIENT
  Age: 62 Year
  Sex: Female
  Weight: 74.8435 kg

DRUGS (1)
  1. CIPROFLOXACIN [Suspect]
     Indication: URINARY TRACT INFECTION
     Dosage: BID PO
     Route: 048
     Dates: start: 20090409, end: 20090415

REACTIONS (3)
  - DECREASED ACTIVITY [None]
  - FEELING ABNORMAL [None]
  - MYALGIA [None]
